FAERS Safety Report 22290390 (Version 3)
Quarter: 2023Q2

REPORT INFORMATION
  Report Type: Report from Study
  Country: US (occurrence: US)
  Receive Date: 20230505
  Receipt Date: 20230616
  Transmission Date: 20230722
  Serious: Yes (Other)
  Sender: FDA-Public Use
  Company Number: US-VERTEX PHARMACEUTICALS-2023-005217

PATIENT
  Age: 9 Year
  Sex: Female
  Weight: 37 kg

DRUGS (12)
  1. TRIKAFTA [Suspect]
     Active Substance: ELEXACAFTOR\IVACAFTOR\TEZACAFTOR
     Indication: Cystic fibrosis
     Dosage: LOW DOSE; 2 TABS (ELEXA 50 MG/TEZA 25 MG/IVA 37.5 MG) IN AM AND 1 TAB (IVA 75 MG) IN PM
     Route: 048
     Dates: start: 20210816, end: 20230127
  2. TRIKAFTA [Suspect]
     Active Substance: ELEXACAFTOR\IVACAFTOR\TEZACAFTOR
     Dosage: HIGH DOSE; (ELEXA 100 MG/TEZA 50 MG/IVA 75 MG) IN AM AND 1 TAB (IVA 150 MG) IN PM
     Route: 048
     Dates: start: 20230127, end: 2023
  3. TRIKAFTA [Suspect]
     Active Substance: ELEXACAFTOR\IVACAFTOR\TEZACAFTOR
     Dosage: HIGH DOSE (ELEX100 MG/TEZA 50 MG/IVA 75 MG) WITHOUT PM DOSE
     Route: 048
     Dates: start: 20230211, end: 20230225
  4. TRIKAFTA [Suspect]
     Active Substance: ELEXACAFTOR\IVACAFTOR\TEZACAFTOR
     Dosage: UNKNOWN DOSE
     Route: 048
     Dates: start: 202304, end: 20230613
  5. FLUTICASONE PROPIONATE [Concomitant]
     Active Substance: FLUTICASONE PROPIONATE
  6. ALBUTEROL SULFATE [Concomitant]
     Active Substance: ALBUTEROL SULFATE
     Dosage: 2.5MG/3ML
     Route: 055
  7. CETIRIZINE HCL [Concomitant]
     Active Substance: CETIRIZINE HYDROCHLORIDE
  8. CREON [Concomitant]
     Active Substance: PANCRELIPASE AMYLASE\PANCRELIPASE LIPASE\PANCRELIPASE PROTEASE
     Dosage: 6K-19K-30K
  9. ALBUTEROL SULFATE [Concomitant]
     Active Substance: ALBUTEROL SULFATE
  10. PREVACID [Concomitant]
     Active Substance: LANSOPRAZOLE
  11. OMEPRAZOLE [Concomitant]
     Active Substance: OMEPRAZOLE
  12. CULTURELLE [Concomitant]
     Active Substance: LACTOBACILLUS RHAMNOSUS

REACTIONS (3)
  - Gamma-glutamyltransferase increased [Recovering/Resolving]
  - Alanine aminotransferase increased [Recovering/Resolving]
  - Aspartate aminotransferase increased [Recovered/Resolved]

NARRATIVE: CASE EVENT DATE: 20230201
